FAERS Safety Report 12451432 (Version 1)
Quarter: 2016Q2

REPORT INFORMATION
  Report Type: Spontaneous
  Country: US (occurrence: None)
  Receive Date: 20160608
  Receipt Date: 20160608
  Transmission Date: 20160815
  Serious: No
  Sender: FDA-Public Use
  Company Number: None

PATIENT
  Age: 25 Year
  Sex: Female

DRUGS (1)
  1. MAKENA [Suspect]
     Active Substance: HYDROXYPROGESTERONE CAPROATE
     Indication: PREGNANCY
     Dosage: 250MG/ML MDV QW SC
     Route: 058
     Dates: start: 20160401

REACTIONS (2)
  - Headache [None]
  - Injection site reaction [None]

NARRATIVE: CASE EVENT DATE: 20160606
